FAERS Safety Report 5668214-0 (Version None)
Quarter: 2008Q1

REPORT INFORMATION
  Report Type: 
  Country: None (occurrence: None)
  Receive Date: 20080315
  Receipt Date: 20080219
  Transmission Date: 20080703
  Serious: No
  Sender: FDA-Public Use
  Company Number: US-ABBOTT-08P-163-0438969-00

PATIENT
  Sex: Male
  Weight: 83.99 kg

DRUGS (8)
  1. HUMIRA [Suspect]
     Indication: RHEUMATOID ARTHRITIS
     Route: 058
     Dates: start: 20070501
  2. VYTORIN [Suspect]
     Indication: BLOOD CHOLESTEROL INCREASED
     Route: 048
     Dates: end: 20080201
  3. METHOTREXATE [Concomitant]
     Indication: RHEUMATOID ARTHRITIS
     Route: 048
     Dates: start: 20070201, end: 20071201
  4. METHOTREXATE [Concomitant]
     Route: 048
     Dates: start: 20071201
  5. OXYCODONE HCL [Concomitant]
     Indication: PAIN
     Route: 048
     Dates: end: 20080201
  6. PREDNISONE [Concomitant]
     Indication: RHEUMATOID ARTHRITIS
     Route: 048
  7. PREGABALIN [Concomitant]
     Indication: PAIN
     Route: 048
     Dates: end: 20080201
  8. PREGABALIN [Concomitant]
     Route: 048
     Dates: start: 20080216

REACTIONS (3)
  - ARTHRALGIA [None]
  - MUSCLE DISORDER [None]
  - PAIN [None]
